FAERS Safety Report 23722235 (Version 1)
Quarter: 2024Q2

REPORT INFORMATION
  Report Type: Spontaneous
  Country: CN (occurrence: CN)
  Receive Date: 20240409
  Receipt Date: 20240409
  Transmission Date: 20240716
  Serious: Yes (Life-Threatening)
  Sender: FDA-Public Use
  Company Number: CN-BAYER-2024A051808

PATIENT
  Age: 30 Year
  Sex: Female

DRUGS (3)
  1. ULTRAVIST [Suspect]
     Active Substance: IOPROMIDE
     Indication: Computerised tomogram abdomen
     Dosage: 90 ML, ONCE
     Route: 042
     Dates: start: 20240328, end: 20240328
  2. ULTRAVIST [Suspect]
     Active Substance: IOPROMIDE
     Indication: Computerised tomogram thorax
  3. ULTRAVIST [Suspect]
     Active Substance: IOPROMIDE
     Indication: Breast cancer

REACTIONS (5)
  - Blood pressure decreased [Recovering/Resolving]
  - Rash [Recovering/Resolving]
  - Skin tightness [None]
  - Heart rate increased [Recovering/Resolving]
  - Erythema of eyelid [Recovering/Resolving]

NARRATIVE: CASE EVENT DATE: 20240328
